FAERS Safety Report 7297278-6 (Version None)
Quarter: 2011Q1

REPORT INFORMATION
  Report Type: 
  Country: None (occurrence: None)
  Receive Date: 20110216
  Receipt Date: 20110209
  Transmission Date: 20110831
  Serious: Yes (Hospitalization, Other)
  Sender: FDA-Public Use
  Company Number: PHHY2010JP66781

PATIENT
  Sex: Male

DRUGS (18)
  1. PROGRAF [Suspect]
     Dosage: 3 MG, DAILY
     Dates: start: 20100430
  2. SOLU-MEDROL [Suspect]
     Dosage: 125 MG
     Route: 042
     Dates: start: 20100318
  3. SOLU-MEDROL [Suspect]
     Indication: RENAL TRANSPLANT
     Dosage: 625 MG
     Route: 042
     Dates: start: 20100316
  4. AMLODIPINE [Concomitant]
     Indication: HYPERTENSION
     Dosage: 5 MG
     Route: 048
     Dates: start: 20100603
  5. CELLCEPT [Suspect]
     Indication: RENAL TRANSPLANT
     Dosage: 1000 MG
     Route: 048
     Dates: start: 20100216
  6. PREDNISONE [Suspect]
     Dosage: 10 MG
     Route: 048
     Dates: start: 20100216
  7. ZANTAC [Concomitant]
     Indication: PROPHYLAXIS
     Dosage: 2 DF
     Route: 042
     Dates: start: 20100316, end: 20100318
  8. PENTCILLIN [Concomitant]
     Indication: PROPHYLAXIS
     Dosage: 2 G
     Route: 042
     Dates: start: 20100316, end: 20100321
  9. ALBUMIN ^BEHRING^ [Concomitant]
     Indication: HYPOALBUMINAEMIA
     Dosage: 100 ML
     Route: 042
     Dates: start: 20100316, end: 20100318
  10. PROGRAF [Suspect]
     Dosage: 16 MG
     Route: 048
     Dates: start: 20100322
  11. SOLU-MEDROL [Suspect]
     Dosage: 250 MG
     Route: 042
     Dates: start: 20100317
  12. RITUXAN [Suspect]
     Indication: RENAL TRANSPLANT
     Dosage: 250 MG
     Route: 042
     Dates: start: 20100302
  13. SIMULECT [Suspect]
     Indication: RENAL TRANSPLANT
     Dosage: 20 MG, ONCE/SINGLE
     Route: 042
     Dates: start: 20100316
  14. PROGRAF [Suspect]
     Indication: RENAL TRANSPLANT
     Dosage: 13 MG
     Route: 042
     Dates: start: 20100316
  15. TAKEPRON [Concomitant]
     Indication: PROPHYLAXIS
     Dosage: 15 MG
     Route: 048
     Dates: start: 20100319
  16. SIMULECT [Suspect]
     Dosage: 20 MG, ONCE/SINGLE
     Route: 042
     Dates: start: 20100320
  17. RITUXAN [Suspect]
     Dosage: 250 MG
     Route: 042
     Dates: start: 20100315
  18. BAKTAR [Concomitant]
     Indication: PROPHYLAXIS
     Dosage: 1 DF
     Route: 048
     Dates: start: 20100216

REACTIONS (5)
  - THROMBOTIC MICROANGIOPATHY [None]
  - KIDNEY TRANSPLANT REJECTION [None]
  - HYPERTENSION [None]
  - CYTOMEGALOVIRUS VIRAEMIA [None]
  - URINE OUTPUT DECREASED [None]
